FAERS Safety Report 4590512-2 (Version None)
Quarter: 2005Q1

REPORT INFORMATION
  Report Type: 
  Country: None (occurrence: None)
  Receive Date: 20050218
  Receipt Date: 20050218
  Transmission Date: 20050727
  Serious: Yes (Other)
  Sender: FDA-Public Use
  Company Number: None

PATIENT
  Sex: Male
  Weight: 12.12 kg

DRUGS (1)
  1. SOLU-MEDROL [Suspect]
     Indication: HYPOXIA
     Dosage: 12 MF   Q12HR  INTRAVENOUS
     Route: 042
     Dates: start: 20050213, end: 20050215

REACTIONS (1)
  - RASH [None]
